FAERS Safety Report 11422776 (Version 1)
Quarter: 2015Q3

REPORT INFORMATION
  Report Type: Spontaneous
  Country: US (occurrence: None)
  Receive Date: 20150826
  Receipt Date: 20150826
  Transmission Date: 20151125
  Serious: No
  Sender: FDA-Public Use
  Company Number: None

PATIENT
  Age: 62 Year
  Sex: Female
  Weight: 74.84 kg

DRUGS (8)
  1. PREDNISONE. [Concomitant]
     Active Substance: PREDNISONE
  2. C PRO-BIOTICS [Concomitant]
  3. LEVOTHYROXINE. [Concomitant]
     Active Substance: LEVOTHYROXINE
  4. OPTIMA LEAN-FROM DES BIOS-PROTEIN SHAKE [Concomitant]
  5. EXTRA B-12 [Concomitant]
  6. PREDNISONE. [Suspect]
     Active Substance: PREDNISONE
     Indication: INFLAMMATION
     Route: 048
     Dates: start: 20150815, end: 20150817
  7. PREDNISONE. [Suspect]
     Active Substance: PREDNISONE
     Indication: RED BLOOD CELL SEDIMENTATION RATE INCREASED
     Route: 048
     Dates: start: 20150815, end: 20150817
  8. PREDNISONE. [Suspect]
     Active Substance: PREDNISONE
     Indication: FOOD POISONING
     Route: 048
     Dates: start: 20150815, end: 20150817

REACTIONS (5)
  - Muscular weakness [None]
  - Arthropathy [None]
  - Product quality issue [None]
  - Abasia [None]
  - Pain [None]

NARRATIVE: CASE EVENT DATE: 20150815
